FAERS Safety Report 21975896 (Version 1)
Quarter: 2023Q1

REPORT INFORMATION
  Report Type: Spontaneous
  Country: IT (occurrence: IT)
  Receive Date: 20230210
  Receipt Date: 20230210
  Transmission Date: 20230418
  Serious: Yes (Other)
  Sender: FDA-Public Use
  Company Number: None

PATIENT
  Age: 72 Year
  Sex: Female
  Weight: 64 kg

DRUGS (6)
  1. LAPATINIB [Suspect]
     Active Substance: LAPATINIB
     Indication: Breast cancer
     Dosage: 1250 MG (LAST DOSE DATE: 13-DEC-2022) (DURANTE IL CICLO N.1 DI TERAPIA LA PAZIENTE HA ASSUNTO 1250 M
     Route: 048
     Dates: start: 20221123
  2. CAPECITABINE [Suspect]
     Active Substance: CAPECITABINE
     Indication: Breast cancer
     Dosage: 3000 MG (LA PAZIENTE HA ASSUNTO 3000 MG DI CAPECITABINA AL GIORNO PER 14 GIORNI.POSOLOGIA DA SCHEMA
     Route: 048
     Dates: start: 20221123, end: 20221206
  3. SIMVASTATIN [Concomitant]
     Active Substance: SIMVASTATIN
     Indication: Product used for unknown indication
     Dosage: 20 MG (LA PAZIENTE ASSUME 20 MG DI SIMVASTATINA, 1 VOLTA AL GIORNO)
     Route: 048
  4. CHOLECALCIFEROL [Concomitant]
     Active Substance: CHOLECALCIFEROL
     Indication: Product used for unknown indication
     Dosage: UNK
     Route: 065
  5. ZOFENOPRIL [Concomitant]
     Active Substance: ZOFENOPRIL
     Indication: Product used for unknown indication
     Dosage: 30 MG (LA PAZIENTE ASSUME ZOFENOPRIL 30 MG, 1/2 COMPRESSA AL GIORNO.)
     Route: 048
  6. ATENOLOL AND CHLORTHALIDONE [Concomitant]
     Active Substance: ATENOLOL\CHLORTHALIDONE
     Indication: Product used for unknown indication
     Dosage: UNK
     Route: 065

REACTIONS (3)
  - Thrombocytopenia [Unknown]
  - Diarrhoea [Recovering/Resolving]
  - Palmar-plantar erythrodysaesthesia syndrome [Unknown]

NARRATIVE: CASE EVENT DATE: 20221124
